FAERS Safety Report 23654978 (Version 3)
Quarter: 2024Q1

REPORT INFORMATION
  Report Type: Spontaneous
  Country: US (occurrence: US)
  Receive Date: 20240320
  Receipt Date: 20240326
  Transmission Date: 20240410
  Serious: Yes (Other)
  Sender: FDA-Public Use
  Company Number: US-PFIZER INC-PV202400037568

PATIENT
  Sex: Female

DRUGS (1)
  1. EXEMESTANE [Suspect]
     Active Substance: EXEMESTANE
     Indication: Breast cancer stage IV
     Dosage: 25 MG, 1X/DAY

REACTIONS (2)
  - Polyneuropathy [Unknown]
  - Condition aggravated [Unknown]
